FAERS Safety Report 7392299-7 (Version None)
Quarter: 2011Q2

REPORT INFORMATION
  Report Type: 
  Country: None (occurrence: None)
  Receive Date: 20110404
  Receipt Date: 20110328
  Transmission Date: 20111010
  Serious: Yes (Hospitalization)
  Sender: FDA-Public Use
  Company Number: FR-PFIZER INC-2010068288

PATIENT
  Age: 79 Year
  Sex: Male

DRUGS (9)
  1. ZOLOFT [Suspect]
     Dosage: 50 MG, 1X/DAY
     Route: 048
     Dates: start: 20100202
  2. ZYLORIC [Concomitant]
     Dosage: 100 MG, 1X/DAY
  3. KERLONE [Concomitant]
     Dosage: 20 MG, 1X/DAY
  4. KARDEGIC [Concomitant]
     Dosage: UNK
     Dates: end: 20100101
  5. COUMADIN [Suspect]
     Dosage: 2 MG, 1X/DAY
     Route: 048
     Dates: end: 20100208
  6. FORLAX [Concomitant]
     Dosage: 2DF/DAY
  7. TEMESTA [Concomitant]
     Dosage: 1 MG, 1X/DAY
  8. INIPOMP [Suspect]
     Dosage: 40 MG, 1X/DAY
     Route: 048
     Dates: start: 20100202
  9. ALLOPURINOL [Suspect]
     Dosage: 100 MG, 1X/DAY
     Route: 048

REACTIONS (2)
  - VARICES OESOPHAGEAL [None]
  - GASTROINTESTINAL HAEMORRHAGE [None]
